FAERS Safety Report 6097115-1 (Version None)
Quarter: 2009Q1

REPORT INFORMATION
  Report Type: 
  Country: None (occurrence: None)
  Receive Date: 20090227
  Receipt Date: 20090216
  Transmission Date: 20090719
  Serious: Yes (Death, Hospitalization, Other)
  Sender: FDA-Public Use
  Company Number: US-BAXTER-2009BH000597

PATIENT
  Age: 61 Year
  Sex: Female
  Weight: 68 kg

DRUGS (1)
  1. DIANEAL [Suspect]
     Indication: RENAL FAILURE CHRONIC
     Route: 033
     Dates: start: 20080714, end: 20081119

REACTIONS (11)
  - ABDOMINAL ABSCESS [None]
  - ASTHENIA [None]
  - GASTRIC PERFORATION [None]
  - HYPOTENSION [None]
  - INFECTION [None]
  - INTRA-ABDOMINAL HAEMATOMA [None]
  - MULTI-ORGAN FAILURE [None]
  - NAUSEA [None]
  - SEPSIS [None]
  - SEPTIC SHOCK [None]
  - VOMITING [None]
